FAERS Safety Report 6114945-8 (Version None)
Quarter: 2009Q1

REPORT INFORMATION
  Report Type: 
  Country: None (occurrence: None)
  Receive Date: 20090313
  Receipt Date: 20090305
  Transmission Date: 20090719
  Serious: Yes (Other)
  Sender: FDA-Public Use
  Company Number: MX-ELI_LILLY_AND_COMPANY-MX200903001827

PATIENT
  Age: 45 Year
  Sex: Female
  Weight: 62 kg

DRUGS (11)
  1. HUMALOG MIX 75/25 [Suspect]
     Indication: DIABETES MELLITUS
     Dosage: 16 IU, EACH MORNING
     Route: 058
     Dates: start: 20081101
  2. HUMALOG MIX 75/25 [Suspect]
     Dosage: 8 IU, EACH EVENING
     Route: 058
     Dates: start: 20091101
  3. HUMALOG MIX 75/25 [Suspect]
     Dosage: 18 IU, EACH MORNING
     Route: 058
     Dates: start: 20090201
  4. HUMALOG MIX 75/25 [Suspect]
     Dosage: 8 IU, EACH EVENING
     Dates: start: 20090201
  5. LYRICA [Concomitant]
     Indication: NEURALGIA
     Dosage: 150 MG, EACH EVENING
     Route: 065
  6. TRAMACET [Concomitant]
     Dosage: UNK UNK, DAILY (1/D)
     Route: 065
  7. TRAMACET [Concomitant]
     Dosage: 325 MG, EACH MORNING
     Route: 065
  8. TRAMACET [Concomitant]
     Dosage: 37.5 MG, DAILY (1/D)
     Route: 065
  9. TRAMACET [Concomitant]
     Dosage: 325 MG, DAILY (1/D)
     Route: 065
  10. TRAMACET [Concomitant]
     Dosage: 37.5 MG, 2/D
     Route: 065
  11. TRAMACET [Concomitant]
     Dosage: 325 MG, 2/D
     Route: 065

REACTIONS (4)
  - FATIGUE [None]
  - HAEMATEMESIS [None]
  - HYPOAESTHESIA [None]
  - VOMITING [None]
